FAERS Safety Report 20041891 (Version 2)
Quarter: 2021Q4

REPORT INFORMATION
  Report Type: Report from Study
  Country: US (occurrence: US)
  Receive Date: 20211108
  Receipt Date: 20211202
  Transmission Date: 20220303
  Serious: No
  Sender: FDA-Public Use
  Company Number: US-NOVARTISTESTPH-NVSC2021US253747

PATIENT
  Sex: Male

DRUGS (1)
  1. ENTRESTO [Suspect]
     Active Substance: SACUBITRIL\VALSARTAN
     Indication: Cardiac failure chronic
     Dosage: 50 MG (24/26 MG)
     Route: 065

REACTIONS (5)
  - Constipation [Unknown]
  - Weight increased [Unknown]
  - Weight decreased [Unknown]
  - Abdominal distension [Unknown]
  - Wrong technique in product usage process [Unknown]
